FAERS Safety Report 7149343-1 (Version None)
Quarter: 2010Q4

REPORT INFORMATION
  Report Type: 
  Country: None (occurrence: None)
  Receive Date: 20101209
  Receipt Date: 20101203
  Transmission Date: 20110411
  Serious: Yes (Other)
  Sender: FDA-Public Use
  Company Number: AR-B.I. PHARMACEUTICALS,INC./RIDGEFIELD-2010-RA-00499RA

PATIENT
  Age: 55 Year
  Sex: Female

DRUGS (4)
  1. SIFROL [Suspect]
  2. LYRICA [Suspect]
  3. TRILEPTAL [Concomitant]
  4. TEGRETOL [Concomitant]

REACTIONS (2)
  - BLOOD PRESSURE INCREASED [None]
  - NEUROLOGICAL DECOMPENSATION [None]
